FAERS Safety Report 8815287 (Version 1)
Quarter: 2012Q4

REPORT INFORMATION
  Report Type: 
  Country: DE (occurrence: DE)
  Receive Date: 20120928
  Receipt Date: 20120928
  Transmission Date: 20130627
  Serious: Yes (Hospitalization)
  Sender: FDA-Public Use
  Company Number: DE-PFIZER INC-2012236351

PATIENT
  Age: 74 Year
  Sex: Male
  Weight: 85 kg

DRUGS (13)
  1. GENOTROPIN [Suspect]
     Indication: HYPOPITUITARISM
     Dosage: 0.1 mg, 7/wk
     Route: 058
     Dates: start: 20020313, end: 20070519
  2. HYDROCORTISONE [Concomitant]
     Indication: BLOOD CORTICOTROPHIN DECREASED
     Dosage: UNK
     Dates: start: 19940701
  3. LEVOTHYROXINE [Concomitant]
     Indication: BLOOD THYROID STIMULATING HORMONE DECREASED
     Dosage: UNK
     Dates: start: 19940901
  4. LEVOTHYROXINE [Concomitant]
     Indication: PRIMARY HYPOTHYROIDISM
  5. ADUMBRAN, OXAZEPAN [Concomitant]
     Indication: MENTAL DISORDER
     Dosage: UNK
     Dates: start: 20050402
  6. NEBIDO [Concomitant]
     Indication: BLOOD LUTEINISING HORMONE DECREASED
     Dosage: UNK
     Dates: start: 20051212
  7. NEBIDO [Concomitant]
     Indication: BLOOD FOLLICLE STIMULATING HORMONE DECREASED
  8. NEBIDO [Concomitant]
     Indication: HYPOGONADISM MALE
  9. ST. JOHN^S WORT [Concomitant]
     Indication: MENTAL DISORDER
     Dosage: UNK
     Dates: start: 20051215
  10. BISOPROLOL [Concomitant]
     Indication: ESSENTIAL HYPERTENSION
     Dosage: UNK
     Dates: start: 20000515
  11. HCT ^CT-ARZNEIMITTEL^ [Concomitant]
     Indication: ESSENTIAL HYPERTENSION
     Dosage: UNK
     Dates: start: 20070417
  12. OMEPRAZOL ^ACYFABRIK^ [Concomitant]
     Indication: GASTRITIS
     Dosage: UNK
     Dates: start: 20070417
  13. OMEPRAZOL ^ACYFABRIK^ [Concomitant]
     Indication: DUODENITIS

REACTIONS (1)
  - Road traffic accident [Unknown]
